FAERS Safety Report 9198876 (Version 1)
Quarter: 2013Q1

REPORT INFORMATION
  Report Type: Spontaneous
  Country: DK (occurrence: None)
  Receive Date: 20130327
  Receipt Date: 20130327
  Transmission Date: 20140127
  Serious: Yes (Death)
  Sender: FDA-Public Use
  Company Number: 2013-05124

PATIENT
  Age: 84 Year
  Sex: Male

DRUGS (2)
  1. DONEPEZIL HYDROCHLORIDE [Suspect]
     Indication: DEMENTIA
     Dates: start: 20130102, end: 20130108
  2. COZAAR (LOSARTAN POTASSIUM) [Concomitant]

REACTIONS (3)
  - Cardiac arrest [None]
  - Hallucination [None]
  - Fatigue [None]
